FAERS Safety Report 19104849 (Version 2)
Quarter: 2021Q2

REPORT INFORMATION
  Report Type: Spontaneous
  Country: CH (occurrence: CH)
  Receive Date: 20210407
  Receipt Date: 20210413
  Transmission Date: 20210717
  Serious: Yes (Death)
  Sender: FDA-Public Use
  Company Number: CH-BAYER-2021-117830

PATIENT
  Sex: Male

DRUGS (1)
  1. VITRAKVI [Suspect]
     Active Substance: LAROTRECTINIB
     Indication: PROSTATE CANCER
     Dosage: UNK
     Dates: start: 20210125

REACTIONS (1)
  - Metastases to bone marrow [Fatal]
